FAERS Safety Report 17078055 (Version 1)
Quarter: 2019Q4

REPORT INFORMATION
  Report Type: Spontaneous
  Country: US (occurrence: US)
  Receive Date: 20191126
  Receipt Date: 20191126
  Transmission Date: 20200122
  Serious: Yes (Other)
  Sender: FDA-Public Use
  Company Number: US-PORTOLA PHARMACEUTICALS, INC.-2019US000098

PATIENT

DRUGS (3)
  1. ANDEXXA [Suspect]
     Active Substance: ANDEXANET ALFA
     Indication: PROCOAGULANT THERAPY
     Dosage: 400 MG, SINGLE BOLUS
     Route: 040
     Dates: start: 2019, end: 2019
  2. ELIQUIS [Concomitant]
     Active Substance: APIXABAN
     Route: 048
  3. ANDEXXA [Suspect]
     Active Substance: ANDEXANET ALFA
     Dosage: UNK INFUSION
     Route: 041

REACTIONS (1)
  - Ischaemic stroke [Unknown]

NARRATIVE: CASE EVENT DATE: 2019
